FAERS Safety Report 5772785-3 (Version None)
Quarter: 2008Q2

REPORT INFORMATION
  Report Type: 
  Country: None (occurrence: None)
  Receive Date: 20080613
  Receipt Date: 20080605
  Transmission Date: 20081010
  Serious: Yes (Other)
  Sender: FDA-Public Use
  Company Number: US-PFIZER INC-2008018798

PATIENT
  Sex: Male

DRUGS (3)
  1. CELEBREX [Suspect]
  2. CARDURA [Suspect]
     Dosage: DAILY DOSE:2MG
  3. LISINOPRIL [Suspect]

REACTIONS (4)
  - DIABETES MELLITUS [None]
  - FIBROMYALGIA [None]
  - LOSS OF CONSCIOUSNESS [None]
  - ORTHOSTATIC HYPOTENSION [None]
